FAERS Safety Report 6448585-8 (Version None)
Quarter: 2009Q4

REPORT INFORMATION
  Report Type: 
  Country: None (occurrence: None)
  Receive Date: 20091120
  Receipt Date: 20091110
  Transmission Date: 20100525
  Serious: Yes (Other)
  Sender: FDA-Public Use
  Company Number: US-AMGEN-QUU373810

PATIENT
  Sex: Female

DRUGS (5)
  1. ENBREL [Suspect]
     Indication: PSORIASIS
  2. ATENOLOL [Concomitant]
  3. ZANTAC [Concomitant]
  4. CELEXA [Concomitant]
  5. UNSPECIFIED STEROIDS [Concomitant]

REACTIONS (3)
  - ACROKERATOSIS PARANEOPLASTICA [None]
  - BASAL CELL CARCINOMA [None]
  - SQUAMOUS CELL CARCINOMA OF SKIN [None]
